FAERS Safety Report 13987273 (Version 1)
Quarter: 2017Q3

REPORT INFORMATION
  Report Type: Spontaneous
  Country: US (occurrence: US)
  Receive Date: 20170919
  Receipt Date: 20170919
  Transmission Date: 20171128
  Serious: No
  Sender: FDA-Public Use
  Company Number: PHEH2017US029952

PATIENT
  Sex: Female

DRUGS (2)
  1. AFINITOR [Suspect]
     Active Substance: EVEROLIMUS
     Indication: CARCINOID TUMOUR
     Route: 048
  2. XARENEL [Concomitant]
     Indication: CARCINOID TUMOUR
     Dosage: 250 MG, TID (THREE TIMES A DAY)
     Route: 048
     Dates: start: 20170823, end: 20170824

REACTIONS (1)
  - Dry mouth [Unknown]
